FAERS Safety Report 5699164-1 (Version None)
Quarter: 2008Q2

REPORT INFORMATION
  Report Type: 
  Country: None (occurrence: None)
  Receive Date: 20080407
  Receipt Date: 20080407
  Transmission Date: 20081010
  Serious: Yes (Other)
  Sender: FDA-Public Use
  Company Number: None

PATIENT
  Age: 73 Year
  Sex: Female
  Weight: 67.1324 kg

DRUGS (1)
  1. VYTORIN [Suspect]
     Indication: BLOOD CHOLESTEROL INCREASED
     Dosage: 1/2 OF TO ONE TABLET AT BEDTIME  1/DAY
     Dates: start: 20061130, end: 20080220

REACTIONS (4)
  - ARTHRALGIA [None]
  - BLOOD CHOLESTEROL ABNORMAL [None]
  - DRUG HYPERSENSITIVITY [None]
  - PAIN [None]
